FAERS Safety Report 4714200-4 (Version None)
Quarter: 2005Q2

REPORT INFORMATION
  Report Type: 
  Country: None (occurrence: None)
  Receive Date: 20050630
  Receipt Date: 20050331
  Transmission Date: 20051028
  Serious: Yes (Hospitalization)
  Sender: FDA-Public Use
  Company Number: 400605

PATIENT
  Age: 58 Year
  Sex: Female
  Weight: 90.7 kg

DRUGS (6)
  1. KLONOPIN [Suspect]
     Indication: ANXIETY
     Dosage: 3 MG DAILY ORAL
     Route: 048
     Dates: start: 19840615
  2. KLONOPIN [Suspect]
     Indication: PANIC ATTACK
     Dosage: 3 MG DAILY ORAL
     Route: 048
     Dates: start: 19840615
  3. XANAX [Suspect]
     Indication: ANXIETY
     Dosage: ORAL
     Route: 048
     Dates: start: 19790615, end: 20030915
  4. XANAX [Suspect]
     Indication: PANIC ATTACK
     Dosage: ORAL
     Route: 048
     Dates: start: 19790615, end: 20030915
  5. LEXAPRO [Concomitant]
  6. EFFEXOR [Concomitant]

REACTIONS (8)
  - CRYING [None]
  - DEPRESSION [None]
  - DRUG WITHDRAWAL SYNDROME [None]
  - HYPOTENSION [None]
  - NERVOUSNESS [None]
  - OVERDOSE [None]
  - PANIC ATTACK [None]
  - TREMOR [None]
